FAERS Safety Report 25642304 (Version 1)
Quarter: 2025Q3

REPORT INFORMATION
  Report Type: Spontaneous
  Country: US (occurrence: US)
  Receive Date: 20250805
  Receipt Date: 20250805
  Transmission Date: 20251021
  Serious: Yes (Life-Threatening, Hospitalization)
  Sender: ACCORD
  Company Number: US-MLMSERVICE-20250717-PI583596-00043-1

PATIENT
  Age: 73 Year
  Sex: Male

DRUGS (1)
  1. ALLOPURINOL [Suspect]
     Active Substance: ALLOPURINOL
     Indication: Gout

REACTIONS (1)
  - SJS-TEN overlap [Unknown]
